FAERS Safety Report 12441952 (Version 3)
Quarter: 2016Q3

REPORT INFORMATION
  Report Type: Spontaneous
  Country: US (occurrence: US)
  Receive Date: 20160607
  Receipt Date: 20160801
  Transmission Date: 20161109
  Serious: Yes (Hospitalization, Other)
  Sender: FDA-Public Use
  Company Number: US-SUN PHARMACEUTICAL INDUSTRIES LTD-2016US-117941

PATIENT
  Age: 84 Year
  Sex: Male
  Weight: 60 kg

DRUGS (10)
  1. CEFEPIME [Concomitant]
     Active Substance: CEFEPIME HYDROCHLORIDE
     Indication: PRODUCT USED FOR UNKNOWN INDICATION
     Dosage: UNK
     Route: 065
  2. VORICONAZOLE. [Interacting]
     Active Substance: VORICONAZOLE
     Indication: BRAIN OEDEMA
     Dosage: 250 MG, BID
     Route: 048
  3. VORICONAZOLE. [Interacting]
     Active Substance: VORICONAZOLE
     Indication: BRAIN OEDEMA
     Dosage: 300 MG, BID
     Route: 042
  4. METRONIDAZOLE. [Concomitant]
     Active Substance: METRONIDAZOLE
     Indication: PRODUCT USED FOR UNKNOWN INDICATION
     Dosage: UNK
     Route: 065
  5. VORICONAZOLE. [Interacting]
     Active Substance: VORICONAZOLE
     Dosage: 200 MG, BID
     Route: 042
  6. DEXAMETHASONE. [Suspect]
     Active Substance: DEXAMETHASONE
     Indication: BRAIN OEDEMA
     Dosage: 4 MG, TID
     Route: 048
  7. VORICONAZOLE. [Interacting]
     Active Substance: VORICONAZOLE
     Dosage: 4 MG/KG (250 MG) Q12H FOR ONE WEEK
     Route: 042
  8. VANCOMYCIN [Concomitant]
     Active Substance: VANCOMYCIN
     Indication: PRODUCT USED FOR UNKNOWN INDICATION
     Dosage: UNK
     Route: 065
  9. VORICONAZOLE. [Interacting]
     Active Substance: VORICONAZOLE
     Indication: BRAIN OEDEMA
     Dosage: 6 MG/KG (400 MG) EVEY 12 HOURS Q12H X 2 DOSES)
     Route: 042
  10. VORICONAZOLE. [Interacting]
     Active Substance: VORICONAZOLE
     Indication: BRAIN OEDEMA
     Dosage: 4 MG, TID
     Route: 048

REACTIONS (5)
  - Therapeutic response decreased [Recovering/Resolving]
  - Hypophagia [Recovering/Resolving]
  - Drug interaction [Recovering/Resolving]
  - Disease progression [Recovering/Resolving]
  - Cognitive disorder [Recovering/Resolving]
